FAERS Safety Report 7210257-X (Version None)
Quarter: 2011Q1

REPORT INFORMATION
  Report Type: 
  Country: None (occurrence: None)
  Receive Date: 20110105
  Receipt Date: 20110105
  Transmission Date: 20110831
  Serious: No
  Sender: FDA-Public Use
  Company Number: None

PATIENT

DRUGS (1)
  1. BENZOCAINE [Suspect]

REACTIONS (8)
  - PALLOR [None]
  - COUGH [None]
  - ANISOCYTOSIS [None]
  - RED BLOOD CELL POIKILOCYTES PRESENT [None]
  - METHAEMOGLOBINAEMIA [None]
  - TACHYPNOEA [None]
  - CYANOSIS [None]
  - SOMNOLENCE [None]
